FAERS Safety Report 7190679-6 (Version None)
Quarter: 2010Q4

REPORT INFORMATION
  Report Type: 
  Country: None (occurrence: None)
  Receive Date: 20101223
  Receipt Date: 20101210
  Transmission Date: 20110411
  Serious: Yes (Other)
  Sender: FDA-Public Use
  Company Number: US-JNJCH-2010028803

PATIENT
  Age: 31 Year
  Sex: Female
  Weight: 75.3 kg

DRUGS (5)
  1. ZYRTEC [Suspect]
     Indication: ALLERGY TO ANIMAL
     Dosage: TEXT:UNSPECIFIED
     Route: 048
  2. ZYRTEC [Suspect]
     Indication: PRODUCT USED FOR UNKNOWN INDICATION
     Dosage: TEXT:UNSPECIFIED
     Route: 065
  3. CLARITIN [Suspect]
     Indication: PRODUCT USED FOR UNKNOWN INDICATION
     Dosage: TEXT:UNSPECIFIED
     Route: 065
  4. SINGULAIR [Concomitant]
     Indication: ASTHMA
     Dosage: TEXT:10 MG 1X DAY
     Route: 065
  5. XOPENEX [Concomitant]
     Indication: ASTHMA
     Dosage: TEXT:45 MCG AS NEEDED
     Route: 065

REACTIONS (4)
  - DIZZINESS [None]
  - MALAISE [None]
  - OFF LABEL USE [None]
  - PRODUCT COMMINGLING [None]
